FAERS Safety Report 7686895-7 (Version None)
Quarter: 2011Q3

REPORT INFORMATION
  Report Type: 
  Country: None (occurrence: None)
  Receive Date: 20110816
  Receipt Date: 20110804
  Transmission Date: 20111222
  Serious: Yes (Other)
  Sender: FDA-Public Use
  Company Number: CA-ELI_LILLY_AND_COMPANY-CA201103002936

PATIENT
  Age: 78 Year
  Sex: Female

DRUGS (12)
  1. VITALUX [Concomitant]
  2. LUTEIN [Concomitant]
  3. CLONAZEPAM [Concomitant]
  4. FORTEO [Suspect]
     Dosage: 20 UG, QD
     Route: 058
  5. CALCIUM CARBONATE [Concomitant]
  6. SYNTHROID [Concomitant]
  7. AMLODIPINE [Concomitant]
  8. VITAMIN K TAB [Concomitant]
  9. FORTEO [Suspect]
     Indication: OSTEOPOROSIS
     Dosage: 20 UG, DAILY (1/D)
     Route: 058
     Dates: start: 20100312
  10. HYDROCHLOROTHIAZIDE [Concomitant]
  11. CYMBALTA [Concomitant]
  12. ASPIRIN [Concomitant]

REACTIONS (4)
  - MACULE [None]
  - SKIN EXFOLIATION [None]
  - ERYTHEMA [None]
  - PRURITUS GENERALISED [None]
